FAERS Safety Report 8605280-4 (Version None)
Quarter: 2012Q3

REPORT INFORMATION
  Report Type: 
  Country: None (occurrence: None)
  Receive Date: 20120820
  Receipt Date: 20120705
  Transmission Date: 20120928
  Serious: Yes (Other)
  Sender: FDA-Public Use
  Company Number: GB-PFIZER INC-2012162092

PATIENT
  Age: 89 Year
  Sex: Female

DRUGS (2)
  1. FOSPHENYTOIN SODIUM [Suspect]
     Dosage: 400 MG, UNK
     Route: 030
  2. PHENYTOIN SODIUM [Suspect]
     Indication: EPILEPSY
     Dosage: UNK
     Route: 048

REACTIONS (4)
  - CONVULSION [None]
  - URINARY TRACT INFECTION [None]
  - CONFUSIONAL STATE [None]
  - REFUSAL OF TREATMENT BY PATIENT [None]
